FAERS Safety Report 25608115 (Version 2)
Quarter: 2025Q3

REPORT INFORMATION
  Report Type: Spontaneous
  Country: US (occurrence: US)
  Receive Date: 20250725
  Receipt Date: 20250825
  Transmission Date: 20251020
  Serious: No
  Sender: BRISTOL-MYERS SQUIBB COMPANY
  Company Number: US-BRISTOL-MYERS SQUIBB COMPANY-2025-104599

PATIENT
  Age: 66 Year
  Sex: Male

DRUGS (1)
  1. POMALYST [Suspect]
     Active Substance: POMALIDOMIDE
     Indication: Plasma cell myeloma in remission
     Route: 048
     Dates: start: 202203

REACTIONS (7)
  - Hypoaesthesia [Unknown]
  - Fatigue [Unknown]
  - Paraesthesia [Unknown]
  - Muscular weakness [Unknown]
  - Back pain [Unknown]
  - Rash [Unknown]
  - Coordination abnormal [Unknown]
